FAERS Safety Report 17209296 (Version 3)
Quarter: 2021Q1

REPORT INFORMATION
  Report Type: Spontaneous
  Country: JP (occurrence: JP)
  Receive Date: 20191227
  Receipt Date: 20210210
  Transmission Date: 20210419
  Serious: Yes (Death)
  Sender: FDA-Public Use
  Company Number: JP-CELGENEUS-JPN-20191209934

PATIENT
  Age: 81 Year
  Sex: Female

DRUGS (1)
  1. POMALYST [Suspect]
     Active Substance: POMALIDOMIDE
     Indication: PLASMA CELL MYELOMA
     Dosage: 4 MILLIGRAM
     Route: 048
     Dates: start: 20171108, end: 20171108

REACTIONS (2)
  - Urticaria [Recovered/Resolved]
  - Plasma cell myeloma [Fatal]

NARRATIVE: CASE EVENT DATE: 20171109
